FAERS Safety Report 11177717 (Version 1)
Quarter: 2015Q2

REPORT INFORMATION
  Report Type: Spontaneous
  Country: US (occurrence: None)
  Receive Date: 20150609
  Receipt Date: 20150609
  Transmission Date: 20150821
  Serious: No
  Sender: FDA-Public Use
  Company Number: None

PATIENT
  Age: 57 Year
  Sex: Female
  Weight: 58.97 kg

DRUGS (6)
  1. COMBIVIR [Concomitant]
     Active Substance: LAMIVUDINE\ZIDOVUDINE
  2. ALBUTEROL INHALER [Concomitant]
     Active Substance: ALBUTEROL
  3. CYCLOBENZAPRINE [Concomitant]
     Active Substance: CYCLOBENZAPRINE
  4. DICLOFENAC SOD [Suspect]
     Active Substance: DICLOFENAC SODIUM
     Indication: ARTHRALGIA
     Dosage: TAKEN BY MOUTH
     Dates: start: 20150603, end: 20150608
  5. DICLOFENAC SOD [Suspect]
     Active Substance: DICLOFENAC SODIUM
     Indication: JOINT SWELLING
     Dosage: TAKEN BY MOUTH
     Dates: start: 20150603, end: 20150608
  6. SUSTIVA [Concomitant]
     Active Substance: EFAVIRENZ

REACTIONS (6)
  - Muscle spasms [None]
  - Faeces discoloured [None]
  - Diarrhoea haemorrhagic [None]
  - Abdominal pain upper [None]
  - Constipation [None]
  - Abdominal pain [None]

NARRATIVE: CASE EVENT DATE: 20150603
